FAERS Safety Report 10338536 (Version 1)
Quarter: 2014Q3

REPORT INFORMATION
  Report Type: Spontaneous
  Country: US (occurrence: None)
  Receive Date: 20140722
  Receipt Date: 20140722
  Transmission Date: 20150326
  Serious: Yes (Hospitalization)
  Sender: FDA-Public Use
  Company Number: None

PATIENT
  Age: 50 Year
  Sex: Male
  Weight: 136.4 kg

DRUGS (1)
  1. NAPROXEN. [Suspect]
     Active Substance: NAPROXEN
     Indication: PAIN
     Route: 048
     Dates: start: 20140331, end: 20140430

REACTIONS (4)
  - Angioedema [None]
  - Hypersensitivity [None]
  - Urticaria [None]
  - No therapeutic response [None]

NARRATIVE: CASE EVENT DATE: 20140426
